FAERS Safety Report 25416421 (Version 8)
Quarter: 2025Q3

REPORT INFORMATION
  Report Type: Report from Study
  Country: BR (occurrence: BR)
  Receive Date: 20250610
  Receipt Date: 20250829
  Transmission Date: 20251020
  Serious: Yes (Hospitalization, Other)
  Sender: TAKEDA
  Company Number: BR-TAKEDA-2025TUS052881

PATIENT
  Sex: Female
  Weight: 93 kg

DRUGS (6)
  1. VEDOLIZUMAB [Suspect]
     Active Substance: VEDOLIZUMAB
     Indication: Colitis ulcerative
  2. VEDOLIZUMAB [Suspect]
     Active Substance: VEDOLIZUMAB
     Indication: Crohn^s disease
  3. MESALAMINE [Suspect]
     Active Substance: MESALAMINE
     Indication: Product used for unknown indication
  4. TRIMEBUTINE [Concomitant]
     Active Substance: TRIMEBUTINE
  5. LT4 [Concomitant]
     Dosage: 15 MICROGRAM, QD
  6. FAMOTIDINE [Concomitant]
     Active Substance: FAMOTIDINE
     Dosage: UNK, BID

REACTIONS (22)
  - Foetal death [Recovered/Resolved]
  - Hypophagia [Recovered/Resolved]
  - Cardiomegaly [Recovered/Resolved]
  - Hyperemesis gravidarum [Unknown]
  - Asthenia [Unknown]
  - Nausea [Unknown]
  - Pleural effusion [Recovered/Resolved]
  - Decreased immune responsiveness [Recovered/Resolved]
  - Hypokalaemia [Unknown]
  - Peripartum cardiomyopathy [Unknown]
  - Blood pressure increased [Unknown]
  - Pregnancy [Recovered/Resolved]
  - Faeces discoloured [Unknown]
  - Fatigue [Recovered/Resolved]
  - Hyponatraemia [Unknown]
  - Faeces soft [Recovering/Resolving]
  - Anaemia [Unknown]
  - Lactose intolerance [Unknown]
  - Peripheral swelling [Recovering/Resolving]
  - Diarrhoea [Recovering/Resolving]
  - Enteritis [Unknown]
  - Feeling abnormal [Unknown]

NARRATIVE: CASE EVENT DATE: 20220101
